FAERS Safety Report 6651817-4 (Version None)
Quarter: 2010Q1

REPORT INFORMATION
  Report Type: 
  Country: None (occurrence: None)
  Receive Date: 20100323
  Receipt Date: 20091002
  Transmission Date: 20100710
  Serious: Yes (Other)
  Sender: FDA-Public Use
  Company Number: 229-20484-09121753

PATIENT
  Sex: Male
  Weight: 2.75 kg

DRUGS (5)
  1. INNOHEP [Suspect]
     Indication: DRUG EXPOSURE DURING PREGNANCY
     Dosage: TRANSPLACENTAL
     Route: 064
     Dates: start: 20060619, end: 20061127
  2. DISTACLOR (DISTACLOR) [Concomitant]
  3. CIPRAMIL (CITALOPRAM) [Concomitant]
  4. METHADONE HCL [Concomitant]
  5. BENZYLPENICILLIN (BENZYLPENICILLIN) [Concomitant]

REACTIONS (2)
  - APGAR SCORE LOW [None]
  - MATERNAL DEATH AFFECTING FOETUS [None]
